FAERS Safety Report 15241503 (Version 1)
Quarter: 2018Q3

REPORT INFORMATION
  Report Type: Spontaneous
  Country: US (occurrence: US)
  Receive Date: 20180712
  Receipt Date: 20180712
  Transmission Date: 20181010
  Serious: Yes (Death)
  Sender: FDA-Public Use
  Company Number: None

PATIENT
  Sex: Male

DRUGS (11)
  1. PRILOSEC [Concomitant]
     Active Substance: OMEPRAZOLE MAGNESIUM
  2. ECOTRIN [Concomitant]
     Active Substance: ASPIRIN
  3. CENTRUM [Concomitant]
     Active Substance: VITAMINS
  4. COREG [Concomitant]
     Active Substance: CARVEDILOL
  5. VITAMIN C [Concomitant]
     Active Substance: ASCORBIC ACID
  6. LUPRON [Suspect]
     Active Substance: LEUPROLIDE ACETATE
     Indication: PROSTATE CANCER
     Dosage: ?          OTHER FREQUENCY:Q4M;?
     Route: 030
     Dates: start: 20110117
  7. LASIX [Concomitant]
     Active Substance: FUROSEMIDE
  8. ZOCOR [Concomitant]
     Active Substance: SIMVASTATIN
  9. OMEGA 3?6?9 [Concomitant]
     Active Substance: FISH OIL
  10. XTANDI [Concomitant]
     Active Substance: ENZALUTAMIDE
  11. VITAMIN E [Concomitant]
     Active Substance: .ALPHA.-TOCOPHEROL

REACTIONS (1)
  - Death [None]
